FAERS Safety Report 5250791-5 (Version None)
Quarter: 2007Q1

REPORT INFORMATION
  Report Type: 
  Country: None (occurrence: None)
  Receive Date: 20070228
  Receipt Date: 20060824
  Transmission Date: 20070707
  Serious: No
  Sender: FDA-Public Use
  Company Number: SSN 4559

PATIENT
  Age: 34 Year
  Sex: Female
  Weight: 56.8 kg

DRUGS (2)
  1. LAMICTAL [Suspect]
     Indication: BIPOLAR DISORDER
     Dosage: 200MG PER DAY
     Route: 048
     Dates: start: 20060401, end: 20060630
  2. ATIVAN [Concomitant]
     Indication: ANXIETY
     Dosage: 1U THREE TIMES PER DAY
     Route: 048

REACTIONS (2)
  - DEPRESSION [None]
  - PRURITUS GENERALISED [None]
